FAERS Safety Report 23625992 (Version 1)
Quarter: 2024Q1

REPORT INFORMATION
  Report Type: Spontaneous
  Country: SA (occurrence: SA)
  Receive Date: 20240313
  Receipt Date: 20240313
  Transmission Date: 20240410
  Serious: Yes (Other)
  Sender: FDA-Public Use
  Company Number: SA-SUN PHARMACEUTICAL INDUSTRIES LTD-2024RR-436092

PATIENT
  Age: 20 Year
  Sex: Male
  Weight: 37 kg

DRUGS (6)
  1. LEVETIRACETAM [Suspect]
     Active Substance: LEVETIRACETAM
     Indication: Myoclonic epilepsy
     Dosage: 1 GRAM, BID
     Route: 065
  2. LEVETIRACETAM [Suspect]
     Active Substance: LEVETIRACETAM
     Dosage: 1500 MILLIGRAM, BID
     Route: 040
  3. VALPROIC ACID [Interacting]
     Active Substance: VALPROIC ACID
     Indication: Myoclonic epilepsy
     Dosage: 500 MILLIGRAM, BID
     Route: 065
  4. LAMOTRIGINE [Interacting]
     Active Substance: LAMOTRIGINE
     Indication: Epileptic psychosis
     Dosage: ESCALATED TO 100 MG BID
     Route: 065
  5. LAMOTRIGINE [Interacting]
     Active Substance: LAMOTRIGINE
     Dosage: 50 MILLIGRAM, BID
     Route: 065
  6. CLONAZEPAM [Suspect]
     Active Substance: CLONAZEPAM
     Indication: Myoclonic epilepsy
     Dosage: 0.5 MILLIGRAM, SINGLE
     Route: 048

REACTIONS (7)
  - Condition aggravated [Unknown]
  - Myoclonus [Unknown]
  - Pancreatitis acute [Unknown]
  - Nystagmus [Unknown]
  - Tremor [Unknown]
  - Drug level below therapeutic [Unknown]
  - Drug interaction [Unknown]
